FAERS Safety Report 4864358-1 (Version None)
Quarter: 2005Q4

REPORT INFORMATION
  Report Type: 
  Country: None (occurrence: None)
  Receive Date: 20051222
  Receipt Date: 20051208
  Transmission Date: 20060501
  Serious: Yes (Hospitalization)
  Sender: FDA-Public Use
  Company Number: US-MERCK-0512USA01644

PATIENT
  Age: 71 Year
  Sex: Female
  Weight: 86 kg

DRUGS (10)
  1. VIOXX [Suspect]
     Indication: ARTHRITIS
     Route: 048
     Dates: start: 19990914, end: 20000201
  2. RISPERDAL [Concomitant]
     Route: 065
  3. TOPROL-XL [Concomitant]
     Route: 065
  4. AXID [Concomitant]
     Route: 065
  5. ALLEGRA [Concomitant]
     Route: 065
  6. PREMARIN [Concomitant]
     Route: 065
  7. PREVACID [Concomitant]
     Route: 065
  8. DIOVAN [Concomitant]
     Route: 065
  9. FUROSEMIDE [Concomitant]
     Route: 065
  10. NORVASC [Concomitant]
     Route: 065

REACTIONS (3)
  - DEMENTIA ALZHEIMER'S TYPE [None]
  - MYOCARDIAL INFARCTION [None]
  - RASH [None]
